FAERS Safety Report 8347051-2 (Version None)
Quarter: 2012Q2

REPORT INFORMATION
  Report Type: 
  Country: None (occurrence: None)
  Receive Date: 20120509
  Receipt Date: 20120501
  Transmission Date: 20120825
  Serious: No
  Sender: FDA-Public Use
  Company Number: US-PFIZER INC-2012043596

PATIENT
  Sex: Male
  Weight: 17.234 kg

DRUGS (6)
  1. CLEOCIN HYDROCHLORIDE [Suspect]
     Indication: ANTIBIOTIC RESISTANT STAPHYLOCOCCUS TEST
     Dosage: UNK, 3X/DAY
     Route: 048
     Dates: start: 20120210, end: 20120214
  2. CLEOCIN HYDROCHLORIDE [Suspect]
     Dosage: UNK
     Route: 048
  3. ZYVOX [Suspect]
     Indication: ANTIBIOTIC RESISTANT STAPHYLOCOCCUS TEST
     Dosage: UNK, 3X/DAY
     Route: 048
     Dates: start: 20120216
  4. XYZAL [Concomitant]
     Indication: HYPERSENSITIVITY
     Dosage: UNK
  5. MULTI-VITAMINS [Concomitant]
     Dosage: UNK
  6. RIFAMPIN [Suspect]
     Indication: ANTIBIOTIC RESISTANT STAPHYLOCOCCUS TEST
     Dosage: 150 MG, 1X/DAY
     Route: 048
     Dates: start: 20120210, end: 20120214

REACTIONS (3)
  - DRUG INEFFECTIVE [None]
  - RETCHING [None]
  - WRONG TECHNIQUE IN DRUG USAGE PROCESS [None]
